FAERS Safety Report 9342297 (Version 1)
Quarter: 2013Q2

REPORT INFORMATION
  Report Type: Spontaneous
  Country: FR (occurrence: FR)
  Receive Date: 20130611
  Receipt Date: 20130611
  Transmission Date: 20140414
  Serious: Yes (Other)
  Sender: FDA-Public Use
  Company Number: PHHY2013FR058384

PATIENT
  Age: 56 Year
  Sex: Female

DRUGS (3)
  1. AFINITOR [Suspect]
     Indication: ADENOCARCINOMA
     Dosage: 10 MG
     Route: 048
     Dates: start: 201302, end: 20130423
  2. AROMASINE [Concomitant]
     Indication: ADENOCARCINOMA
  3. FEMARA [Concomitant]
     Indication: ADENOCARCINOMA

REACTIONS (3)
  - Cardiac failure [Not Recovered/Not Resolved]
  - Ejection fraction decreased [Recovered/Resolved]
  - Oedema peripheral [Not Recovered/Not Resolved]
